FAERS Safety Report 5303660-6 (Version None)
Quarter: 2007Q2

REPORT INFORMATION
  Report Type: 
  Country: None (occurrence: None)
  Receive Date: 20070420
  Receipt Date: 20070413
  Transmission Date: 20071010
  Serious: Yes (Hospitalization)
  Sender: FDA-Public Use
  Company Number: FR-ABBOTT-06P-056-0353537-00

PATIENT
  Age: 66 Year
  Sex: Female

DRUGS (4)
  1. RITONAVIR SOFT GELATIN CAPSULES [Suspect]
     Indication: HIV INFECTION
     Route: 048
     Dates: start: 20031015
  2. FLUTICASONE/SALMETEROL [Suspect]
     Indication: DYSPNOEA
     Route: 055
     Dates: start: 20050615, end: 20051115
  3. AMIODARONE HCL [Concomitant]
     Indication: ARRHYTHMIA
     Route: 048
     Dates: start: 20050101
  4. FLUINDIONE [Concomitant]
     Indication: ARRHYTHMIA
     Route: 048
     Dates: start: 20050101

REACTIONS (6)
  - ADRENAL INSUFFICIENCY [None]
  - CUSHING'S SYNDROME [None]
  - MALAISE [None]
  - ORTHOSTATIC HYPOTENSION [None]
  - TACHYCARDIA [None]
  - VESTIBULAR DISORDER [None]
